FAERS Safety Report 12850276 (Version 2)
Quarter: 2016Q4

REPORT INFORMATION
  Report Type: Report from Study
  Country: CA (occurrence: CA)
  Receive Date: 20161014
  Receipt Date: 20161115
  Transmission Date: 20170207
  Serious: Yes (Hospitalization)
  Sender: FDA-Public Use
  Company Number: PHHY2016CA088814

PATIENT
  Sex: Female

DRUGS (2)
  1. ACLASTA [Suspect]
     Active Substance: ZOLEDRONIC ACID
     Indication: OSTEOPOROSIS
     Dosage: 1 DF (5/100 MG/ML), UNK
     Route: 042
     Dates: start: 20150319
  2. ACLASTA [Suspect]
     Active Substance: ZOLEDRONIC ACID
     Dosage: UNK
     Route: 065
     Dates: start: 20161011

REACTIONS (8)
  - Pain [Unknown]
  - Infection [Recovered/Resolved]
  - Poor venous access [Recovered/Resolved]
  - Sickle cell anaemia with crisis [Recovered/Resolved]
  - Haemoglobin decreased [Recovered/Resolved]
  - Sickle cell anaemia [Recovered/Resolved]
  - Bone pain [Recovered/Resolved]
  - Malaise [Unknown]
